FAERS Safety Report 6529881-2 (Version None)
Quarter: 2010Q1

REPORT INFORMATION
  Report Type: 
  Country: None (occurrence: None)
  Receive Date: 20100107
  Receipt Date: 20100105
  Transmission Date: 20100710
  Serious: Yes (Other)
  Sender: FDA-Public Use
  Company Number: A0837877A

PATIENT
  Age: 61 Year
  Sex: Male

DRUGS (6)
  1. COREG [Suspect]
     Indication: HYPERTENSION
     Route: 048
  2. MULTAQ [Suspect]
     Indication: ATRIAL FIBRILLATION
     Dosage: 400MG TWICE PER DAY
     Route: 048
     Dates: start: 20091101
  3. GLUCOPHAGE [Concomitant]
  4. COUMADIN [Concomitant]
     Dosage: 12MG PER DAY
  5. CARDIZEM [Concomitant]
     Dosage: 240MG PER DAY
  6. AMIODARONE HCL [Concomitant]

REACTIONS (9)
  - ANXIETY [None]
  - ATRIAL FIBRILLATION [None]
  - CHEST DISCOMFORT [None]
  - DIZZINESS [None]
  - DYSPNOEA EXERTIONAL [None]
  - EUPHORIC MOOD [None]
  - FATIGUE [None]
  - FLATULENCE [None]
  - PERFORMANCE STATUS DECREASED [None]
